FAERS Safety Report 8596712-9 (Version None)
Quarter: 2012Q3

REPORT INFORMATION
  Report Type: 
  Country: None (occurrence: None)
  Receive Date: 20120815
  Receipt Date: 20120801
  Transmission Date: 20120928
  Serious: Yes (Hospitalization)
  Sender: FDA-Public Use
  Company Number: ES-ELI_LILLY_AND_COMPANY-ES201208000998

PATIENT
  Age: 45 Year
  Sex: Female

DRUGS (2)
  1. METFORMIN HCL [Concomitant]
     Dosage: 80 MG, BID
  2. BYETTA [Suspect]
     Dosage: UNK, UNKNOWN
     Dates: start: 20111201

REACTIONS (6)
  - MALAISE [None]
  - NAUSEA [None]
  - HOSPITALISATION [None]
  - BLOOD GLUCOSE DECREASED [None]
  - ERUCTATION [None]
  - DIZZINESS [None]
